FAERS Safety Report 9614404 (Version 3)
Quarter: 2013Q4

REPORT INFORMATION
  Report Type: Spontaneous
  Country: ES (occurrence: ES)
  Receive Date: 20131011
  Receipt Date: 20131127
  Transmission Date: 20140711
  Serious: Yes (Hospitalization, Other)
  Sender: FDA-Public Use
  Company Number: ES-AMGEN-ESPSP2013071358

PATIENT
  Age: 38 Year
  Sex: Female

DRUGS (7)
  1. ENBREL [Suspect]
     Indication: PRODUCT USED FOR UNKNOWN INDICATION
     Dosage: 50 MG, EVERY 2 WEEKS
     Route: 065
     Dates: start: 201204, end: 201307
  2. IBUPROFEN [Concomitant]
     Dosage: UNK
  3. PARACETAMOL [Concomitant]
     Indication: PAIN
     Dosage: AS NECESSARY
  4. NOLOTIL                            /06276702/ [Concomitant]
     Indication: PAIN
     Dosage: AS NECESSARY
  5. DAFLON                             /00426001/ [Concomitant]
     Indication: VENOUS INSUFFICIENCY
     Dosage: UNK
  6. DAFLON                             /00426001/ [Concomitant]
     Indication: VARICOSE VEIN
  7. NEXUM [Concomitant]
     Dosage: 40 MG, 1X/DAY (WITH BREAKFAST)

REACTIONS (3)
  - Epistaxis [Recovered/Resolved]
  - Optic neuritis [Recovering/Resolving]
  - Off label use [Recovering/Resolving]
